FAERS Safety Report 9039522 (Version 1)
Quarter: 2013Q1

REPORT INFORMATION
  Report Type: Spontaneous
  Country: US (occurrence: None)
  Receive Date: 20130123
  Receipt Date: 20130123
  Transmission Date: 20140127
  Serious: Yes (Other)
  Sender: FDA-Public Use
  Company Number: None

PATIENT
  Age: 65 Year
  Sex: Female

DRUGS (1)
  1. LETROZOLE [Suspect]
     Dosage: LETRAZOLE 2.5MG  DAILY  PO
     Route: 048

REACTIONS (6)
  - Fatigue [None]
  - Pain [None]
  - Asthenia [None]
  - Dizziness [None]
  - Fall [None]
  - Nodule [None]
